FAERS Safety Report 19735785 (Version 1)
Quarter: 2021Q3

REPORT INFORMATION
  Report Type: Spontaneous
  Country: US (occurrence: US)
  Receive Date: 20210823
  Receipt Date: 20210823
  Transmission Date: 20211014
  Serious: No
  Sender: FDA-Public Use
  Company Number: US-ORGANON-O2108USA001095

PATIENT
  Sex: Female

DRUGS (2)
  1. ASMANEX [Suspect]
     Active Substance: MOMETASONE FUROATE
     Dosage: 2 PUFFS A DAY
     Dates: start: 20210728
  2. ASMANEX [Suspect]
     Active Substance: MOMETASONE FUROATE
     Dosage: 2 SPRAYS DAILY
     Dates: start: 20210811

REACTIONS (9)
  - Circumstance or information capable of leading to device use error [Unknown]
  - Poor quality device used [Unknown]
  - Circumstance or information capable of leading to medication error [Unknown]
  - Device malfunction [Unknown]
  - Product dose omission issue [Unknown]
  - Poor quality device used [Unknown]
  - No adverse event [Unknown]
  - Incorrect dose administered [Unknown]
  - Device malfunction [Unknown]

NARRATIVE: CASE EVENT DATE: 20210728
